FAERS Safety Report 7358049-5 (Version None)
Quarter: 2011Q1

REPORT INFORMATION
  Report Type: 
  Country: None (occurrence: None)
  Receive Date: 20110317
  Receipt Date: 20110309
  Transmission Date: 20110831
  Serious: Yes (Other)
  Sender: FDA-Public Use
  Company Number: US-TEVA-270562USA

PATIENT
  Sex: Female

DRUGS (2)
  1. PENICILLIN G POTASSIUM [Suspect]
  2. LIDOCAINE [Concomitant]
     Indication: PAIN

REACTIONS (2)
  - APPARENT DEATH [None]
  - BONE DENSITY ABNORMAL [None]
